FAERS Safety Report 4866832-0 (Version None)
Quarter: 2005Q4

REPORT INFORMATION
  Report Type: 
  Country: None (occurrence: None)
  Receive Date: 20051222
  Receipt Date: 20051209
  Transmission Date: 20060501
  Serious: Yes (Death, Other)
  Sender: FDA-Public Use
  Company Number: 2005-DE-05428GD

PATIENT
  Age: 11 Year
  Sex: Female
  Weight: 26 kg

DRUGS (16)
  1. MORPHINE [Suspect]
     Indication: PAIN
     Dosage: SEE IMAGE
     Route: 048
  2. METAMIZOLE (METAMIZOLE SODIUM) [Suspect]
     Indication: PAIN
     Dosage: 100 DROPS , FOUR TIMES, PO
     Route: 048
  3. IBUPROFEN [Suspect]
     Indication: PAIN
     Dosage: 400 MG TWICE, PO
     Route: 048
  4. DEXAMETHASONE [Suspect]
     Indication: PAIN
     Dosage: 5 MG (ONCE DAILY), PO
     Route: 048
  5. GABAPENTIN [Suspect]
     Indication: PAIN
     Dosage: 300 MG, THRICE, PO
     Route: 048
  6. FENTANYL [Suspect]
     Indication: PAIN
     Dosage: SEE IMAGE
     Route: 062
  7. PIRITRAMIDE (PIRITRAMIDE) [Suspect]
     Indication: PAIN
     Dosage: 3-MG BOLUSES (MEAN CONSUMPTION 9-18 MG/H), IV
     Route: 042
  8. LACTULOSE [Concomitant]
  9. DIMENHYDRINATE [Concomitant]
  10. S-KETAMINE (ESKETAMINE) [Concomitant]
  11. CARBOPLATIN [Concomitant]
  12. IFOSFAMIDE [Concomitant]
  13. ETOPOSIDE [Concomitant]
  14. SODIUM OXYBATE (OXYBATE SODIUM) [Concomitant]
  15. MIDAZOLAM HCL [Concomitant]
  16. ALFENTANIL [Concomitant]

REACTIONS (4)
  - CANCER PAIN [None]
  - CHOLESTASIS [None]
  - CONSTIPATION [None]
  - DRUG INEFFECTIVE [None]
